FAERS Safety Report 18240650 (Version 1)
Quarter: 2020Q3

REPORT INFORMATION
  Report Type: Spontaneous
  Country: US (occurrence: US)
  Receive Date: 20200904
  Receipt Date: 20200904
  Transmission Date: 20201103
  Serious: No
  Sender: FDA-Public Use
  Company Number: None

PATIENT
  Age: 76 Year
  Sex: 0

DRUGS (1)
  1. OTEZLA [Suspect]
     Active Substance: APREMILAST
     Indication: RHEUMATOID ARTHRITIS
     Dosage: ?          OTHER STRENGTH:STARTER PACK;?
     Route: 048
     Dates: start: 20200804, end: 20200814

REACTIONS (3)
  - Wheezing [None]
  - Cough [None]
  - Sinusitis [None]

NARRATIVE: CASE EVENT DATE: 20200809
